FAERS Safety Report 7936394-X (Version None)
Quarter: 2011Q4

REPORT INFORMATION
  Report Type: 
  Country: None (occurrence: None)
  Receive Date: 20111123
  Receipt Date: 20111109
  Transmission Date: 20120403
  Serious: Yes (Other)
  Sender: FDA-Public Use
  Company Number: IT-CELGENEUS-083-21880-10052089

PATIENT

DRUGS (6)
  1. REVLIMID [Suspect]
     Indication: MANTLE CELL LYMPHOMA
     Dosage: 25 MILLIGRAM
     Route: 048
  2. FRAXIPARIN [Concomitant]
     Indication: THROMBOSIS PROPHYLAXIS
     Dosage: 4000 IU (INTERNATIONAL UNIT)
     Route: 065
  3. ENOXAPARIN [Concomitant]
     Indication: THROMBOSIS PROPHYLAXIS
     Dosage: 4000 IU (INTERNATIONAL UNIT)
     Route: 065
  4. WARFARIN SODIUM [Concomitant]
     Indication: THROMBOSIS PROPHYLAXIS
     Dosage: 1 MILLIGRAM
     Route: 065
  5. DEXAMETHASONE [Concomitant]
     Indication: MANTLE CELL LYMPHOMA
     Dosage: 40 MILLIGRAM
     Route: 065
  6. ASPIRIN [Concomitant]
     Indication: THROMBOSIS PROPHYLAXIS
     Dosage: 100 MILLIGRAM
     Route: 065

REACTIONS (11)
  - THROMBOCYTOPENIA [None]
  - PNEUMONIA BACTERIAL [None]
  - MANTLE CELL LYMPHOMA [None]
  - DISEASE PROGRESSION [None]
  - NEUTROPENIA [None]
  - FEBRILE NEUTROPENIA [None]
  - DYSPNOEA [None]
  - NO THERAPEUTIC RESPONSE [None]
  - ANAEMIA [None]
  - LEUKOPENIA [None]
  - CARDIOTOXICITY [None]
